FAERS Safety Report 5237608-X (Version None)
Quarter: 2007Q1

REPORT INFORMATION
  Report Type: 
  Country: None (occurrence: None)
  Receive Date: 20070213
  Receipt Date: 20070205
  Transmission Date: 20070707
  Serious: Yes (Death, Life-Threatening)
  Sender: FDA-Public Use
  Company Number: FR-PFIZER INC-2007010439

PATIENT
  Age: 77 Year
  Sex: Male
  Weight: 87 kg

DRUGS (3)
  1. FRAGMIN [Suspect]
     Route: 042
     Dates: start: 20061129, end: 20061129
  2. ARANESP [Suspect]
     Route: 042
  3. VENOFER [Concomitant]

REACTIONS (4)
  - CHILLS [None]
  - FLUSHING [None]
  - HAEMOLYSIS [None]
  - PYREXIA [None]
